FAERS Safety Report 10102931 (Version 2)
Quarter: 2014Q2

REPORT INFORMATION
  Report Type: Spontaneous
  Country: FR (occurrence: FR)
  Receive Date: 20140424
  Receipt Date: 20140518
  Transmission Date: 20141212
  Serious: Yes (Hospitalization, Other)
  Sender: FDA-Public Use
  Company Number: PHHY2014FR049167

PATIENT
  Age: 46 Year
  Sex: Female
  Weight: 85 kg

DRUGS (5)
  1. CYTARABINE EBEWE [Suspect]
     Indication: ACUTE LYMPHOCYTIC LEUKAEMIA
     Dosage: 5700 MG, TWICE DAILY
     Route: 042
     Dates: start: 20131129, end: 20131130
  2. METHOTREXATE [Suspect]
     Indication: ACUTE LYMPHOCYTIC LEUKAEMIA
     Dosage: UNK UKN, UNK
     Dates: start: 20131128
  3. TOBRADEX [Concomitant]
     Dosage: 1 DRP, QID
     Route: 047
  4. TASIGNA [Concomitant]
     Dosage: 400 MG, BID
     Route: 048
     Dates: end: 20131204
  5. CALCIUM FOLINATE [Concomitant]
     Dosage: 25 MG, QID
     Route: 065

REACTIONS (15)
  - Febrile bone marrow aplasia [Recovered/Resolved]
  - Intertrigo [Unknown]
  - Pain in extremity [Unknown]
  - Cerebellar syndrome [Not Recovered/Not Resolved]
  - Hallucination [Unknown]
  - Neutropenia [Unknown]
  - Pyrexia [Unknown]
  - Dysarthria [Recovered/Resolved]
  - Gait disturbance [Not Recovered/Not Resolved]
  - Petit mal epilepsy [Unknown]
  - Renal failure [Recovered/Resolved]
  - Pleural effusion [Unknown]
  - Encephalitis [Recovered/Resolved]
  - Breath sounds abnormal [Unknown]
  - Abdominal pain [Unknown]
